FAERS Safety Report 6480298-9 (Version None)
Quarter: 2009Q4

REPORT INFORMATION
  Report Type: 
  Country: None (occurrence: None)
  Receive Date: 20091208
  Receipt Date: 20091126
  Transmission Date: 20100525
  Serious: Yes (Death)
  Sender: FDA-Public Use
  Company Number: MY-ELI_LILLY_AND_COMPANY-MY200911006798

PATIENT
  Age: 58 Year
  Sex: Male

DRUGS (10)
  1. ZYPREXA [Suspect]
     Indication: MAJOR DEPRESSION
     Dosage: 10 MG, EACH EVENING
     Route: 048
     Dates: start: 20091108, end: 20091108
  2. ZYPREXA [Suspect]
     Dosage: 10 MG, 2/D
     Route: 048
     Dates: start: 20091109, end: 20091114
  3. FLUVOXAMINE MALEATE [Concomitant]
     Dosage: 50 MG, DAILY (1/D)
  4. LAMOTRIGINE [Concomitant]
     Dosage: 50 MG, EACH MORNING
  5. LAMOTRIGINE [Concomitant]
     Dosage: 100 MG, EACH EVENING
  6. DIAZEPAM [Concomitant]
     Dosage: UNK, UNKNOWN
  7. METFORMIN HCL [Concomitant]
     Indication: DIABETES MELLITUS
     Dosage: UNK, UNKNOWN
  8. ATENOLOL [Concomitant]
     Indication: HYPERTENSION
     Dosage: UNK, UNKNOWN
  9. RISPERIDONE [Concomitant]
     Dosage: 0.5 MG, 2/D
     Route: 048
     Dates: start: 20091029, end: 20091101
  10. RISPERIDONE [Concomitant]
     Dosage: 1 MG, 2/D
     Route: 048
     Dates: start: 20091102, end: 20091108

REACTIONS (2)
  - MUSCLE RIGIDITY [None]
  - SEPSIS [None]
